FAERS Safety Report 10744016 (Version 1)
Quarter: 2015Q1

REPORT INFORMATION
  Report Type: Spontaneous
  Country: US (occurrence: US)
  Receive Date: 20150128
  Receipt Date: 20150128
  Transmission Date: 20150721
  Serious: No
  Sender: FDA-Public Use
  Company Number: US-BIOGENIDEC-2015BI008913

PATIENT
  Age: 62 Year
  Sex: Female

DRUGS (5)
  1. RANITIDINE HCI [Concomitant]
  2. TECFIDERA [Suspect]
     Active Substance: DIMETHYL FUMARATE
     Indication: MULTIPLE SCLEROSIS
     Route: 048
     Dates: start: 20141209
  3. VITAMIN D [Concomitant]
     Active Substance: CHOLECALCIFEROL
  4. PROMETHAZINE HCI [Concomitant]
  5. TYLENOL PM EXTRA STRENGTH [Concomitant]
     Active Substance: ACETAMINOPHEN\DIPHENHYDRAMINE HYDROCHLORIDE

REACTIONS (3)
  - Diarrhoea [Unknown]
  - Nausea [Unknown]
  - Constipation [Unknown]
